FAERS Safety Report 22206367 (Version 1)
Quarter: 2023Q2

REPORT INFORMATION
  Report Type: Spontaneous
  Country: CN (occurrence: CN)
  Receive Date: 20230413
  Receipt Date: 20230413
  Transmission Date: 20230721
  Serious: Yes (Other)
  Sender: FDA-Public Use
  Company Number: CN-AMGEN-CHNSP2023061530

PATIENT
  Age: 52 Year
  Sex: Male

DRUGS (5)
  1. CARFILZOMIB [Suspect]
     Active Substance: CARFILZOMIB
     Indication: Plasma cell myeloma
     Dosage: 44.0 MILLIGRAM, QD
     Route: 042
     Dates: start: 20221011, end: 20221012
  2. ETOPOSIDE [Suspect]
     Active Substance: ETOPOSIDE
     Indication: Plasma cell myeloma
     Dosage: 0.080 GRAM, QD
     Route: 042
     Dates: start: 20221011, end: 20221014
  3. CYCLOPHOSPHAMIDE [Suspect]
     Active Substance: CYCLOPHOSPHAMIDE
     Indication: Plasma cell myeloma
     Dosage: 0.80 GRAM, QD
     Route: 042
     Dates: start: 20221011, end: 20221014
  4. EPIRUBICIN [Suspect]
     Active Substance: EPIRUBICIN
     Indication: Plasma cell myeloma
     Dosage: 30.0 MILLIGRAM, QD
     Route: 042
     Dates: start: 20221011, end: 20221014
  5. CISPLATIN [Suspect]
     Active Substance: CISPLATIN
     Indication: Plasma cell myeloma
     Dosage: 20.0 MILLIGRAM, QD
     Route: 042
     Dates: start: 20221011, end: 20221014

REACTIONS (1)
  - Myelosuppression [Recovering/Resolving]

NARRATIVE: CASE EVENT DATE: 20221017
